FAERS Safety Report 4947942-6 (Version None)
Quarter: 2006Q1

REPORT INFORMATION
  Report Type: 
  Country: None (occurrence: None)
  Receive Date: 20060320
  Receipt Date: 20060309
  Transmission Date: 20060701
  Serious: Yes (Other)
  Sender: FDA-Public Use
  Company Number: IT-JNJFOC-20060304066

PATIENT
  Sex: Female

DRUGS (8)
  1. DAKTARIN 2% ORAL GEL [Suspect]
     Indication: STOMATITIS
     Route: 048
     Dates: start: 20051103, end: 20051122
  2. DAKTARIN 2% ORAL GEL [Suspect]
     Indication: ORAL CANDIDIASIS
     Route: 048
     Dates: start: 20051103, end: 20051122
  3. WARFARIN [Suspect]
     Indication: DRUG USE FOR UNKNOWN INDICATION
     Route: 065
  4. ZYLORIC [Concomitant]
     Route: 065
  5. DILATREND [Concomitant]
     Route: 065
  6. LASIX [Concomitant]
     Route: 065
  7. CALCIUM CARBONATE [Concomitant]
     Route: 065
  8. DARBEPOETIN ALFA [Concomitant]
     Route: 065

REACTIONS (2)
  - EPISTAXIS [None]
  - INTERNATIONAL NORMALISED RATIO INCREASED [None]
